FAERS Safety Report 22636563 (Version 1)
Quarter: 2023Q2

REPORT INFORMATION
  Report Type: Spontaneous
  Country: RU (occurrence: None)
  Receive Date: 20230623
  Receipt Date: 20230623
  Transmission Date: 20230722
  Serious: Yes (Life-Threatening, Hospitalization)
  Sender: FDA-Public Use
  Company Number: 2023A144537

PATIENT
  Age: 60 Year
  Sex: Female

DRUGS (7)
  1. EVUSHELD [Suspect]
     Active Substance: CILGAVIMAB\TIXAGEVIMAB
     Dosage: 600 MG (TIXAGEVIMAB/CILGAVIMAB) UNKNOWN
     Route: 030
     Dates: start: 20230202
  2. METYPRED ORION [Concomitant]
     Indication: Rheumatoid arthritis
     Route: 048
     Dates: start: 20221101
  3. CARBAMAZEPINE [Concomitant]
     Active Substance: CARBAMAZEPINE
     Route: 048
     Dates: start: 20221201
  4. MELOXICAM [Concomitant]
     Active Substance: MELOXICAM
  5. OMEPRAZOLE [Concomitant]
     Active Substance: OMEPRAZOLE
  6. ENAM [Concomitant]
  7. ILSIRA [Concomitant]

REACTIONS (1)
  - Angioedema [Recovered/Resolved]

NARRATIVE: CASE EVENT DATE: 20230202
